FAERS Safety Report 9219417 (Version 1)
Quarter: 2013Q1

REPORT INFORMATION
  Report Type: Spontaneous
  Country: US (occurrence: US)
  Receive Date: 20120830
  Receipt Date: 20120830
  Transmission Date: 20140127
  Serious: Yes (Other)
  Sender: FDA-Public Use
  Company Number: PHEH2012US003798

PATIENT
  Sex: Male

DRUGS (2)
  1. EXFORGE [Suspect]
     Dates: start: 20080424
  2. CLONIDINE [Suspect]

REACTIONS (2)
  - Blood pressure diastolic decreased [None]
  - Hypertension [None]
